FAERS Safety Report 19884264 (Version 1)
Quarter: 2021Q3

REPORT INFORMATION
  Report Type: Spontaneous
  Country: US (occurrence: US)
  Receive Date: 20210925
  Receipt Date: 20210925
  Transmission Date: 20211014
  Serious: Yes (Other)
  Sender: FDA-Public Use
  Company Number: None

PATIENT
  Age: 5 Year
  Sex: Female
  Weight: 22.05 kg

DRUGS (3)
  1. SUCRETS COMPLETE [Suspect]
     Active Substance: DYCLONINE HYDROCHLORIDE\MENTHOL
     Indication: OROPHARYNGEAL PAIN
     Dosage: ?QUANTITY:1 LOZENGE;?OTHER FREQUENCY:EVERY 2 HOURS;?
     Route: 048
     Dates: start: 20210925, end: 20210925
  2. SUCRETS COMPLETE [Suspect]
     Active Substance: DYCLONINE HYDROCHLORIDE\MENTHOL
     Indication: COUGH
     Dosage: ?QUANTITY:1 LOZENGE;?OTHER FREQUENCY:EVERY 2 HOURS;?
     Route: 048
     Dates: start: 20210925, end: 20210925
  3. DAILY CHILDRENS VITAMIN [Concomitant]

REACTIONS (2)
  - Rash [None]
  - Urticaria [None]

NARRATIVE: CASE EVENT DATE: 20210925
